FAERS Safety Report 6011039-7 (Version None)
Quarter: 2008Q4

REPORT INFORMATION
  Report Type: 
  Country: None (occurrence: None)
  Receive Date: 20081218
  Receipt Date: 20081206
  Transmission Date: 20090506
  Serious: Yes (Death, Other)
  Sender: FDA-Public Use
  Company Number: US-PFIZER INC-2008072120

PATIENT
  Sex: Male
  Weight: 58.503 kg

DRUGS (3)
  1. SUTENT [Suspect]
     Indication: METASTATIC CARCINOMA OF THE BLADDER
     Dosage: 50 MG, 1X/DAY
     Route: 048
     Dates: start: 20080701
  2. MIDODRINE [Concomitant]
     Dosage: UNK
  3. ARANESP [Concomitant]

REACTIONS (3)
  - DISEASE PROGRESSION [None]
  - FATIGUE [None]
  - METASTATIC CARCINOMA OF THE BLADDER [None]
